FAERS Safety Report 9527527 (Version 3)
Quarter: 2013Q4

REPORT INFORMATION
  Report Type: Spontaneous
  Country: US (occurrence: None)
  Receive Date: 20130913
  Receipt Date: 20131115
  Transmission Date: 20140711
  Serious: Yes (Death)
  Sender: FDA-Public Use
  Company Number: 2013US002416

PATIENT
  Age: 84 Year
  Sex: Male

DRUGS (1)
  1. ICLUSIG [Suspect]
     Indication: ACUTE LYMPHOCYTIC LEUKAEMIA
     Route: 048
     Dates: start: 20130807

REACTIONS (3)
  - Abdominal distension [None]
  - Thrombocytopenia [None]
  - Disease progression [None]
